FAERS Safety Report 16449512 (Version 1)
Quarter: 2019Q2

REPORT INFORMATION
  Report Type: Spontaneous
  Country: US (occurrence: US)
  Receive Date: 20190509
  Receipt Date: 20190509
  Transmission Date: 20190713
  Serious: Yes (Death)
  Sender: FDA-Public Use
  Company Number: None

PATIENT
  Age: 43 Year
  Sex: Female
  Weight: 23.36 kg

DRUGS (16)
  1. CLOZAPINE. [Concomitant]
     Active Substance: CLOZAPINE
  2. LUBIPROSTONE [Concomitant]
     Active Substance: LUBIPROSTONE
  3. ALPRAZOLAM. [Concomitant]
     Active Substance: ALPRAZOLAM
     Dosage: ?          OTHER FREQUENCY:NIGHTLY ;?
  4. DEXTROAMPHET SACCHARAT, AMPHET ASPARTATE, DEXTROAMPHET SULFATE AND AMPHET SULFAT [Concomitant]
     Active Substance: AMPHETAMINE ASPARTATE\AMPHETAMINE SULFATE\DEXTROAMPHETAMINE SACCHARATE\DEXTROAMPHETAMINE SULFATE
  5. ZOLPIDEM [Concomitant]
     Active Substance: ZOLPIDEM\ZOLPIDEM TARTRATE
  6. CARBIDOPA-LEVODOPA [Concomitant]
     Active Substance: CARBIDOPA\LEVODOPA
  7. CLONIDINE. [Concomitant]
     Active Substance: CLONIDINE
     Route: 048
  8. CALCIUM CARBONATE. [Concomitant]
     Active Substance: CALCIUM CARBONATE
     Route: 048
  9. CISAPRIDE 10MG TABS [Suspect]
     Active Substance: CISAPRIDE
     Route: 048
     Dates: start: 2013, end: 20190404
  10. CICLOPIROX. [Concomitant]
     Active Substance: CICLOPIROX
  11. NUVARING [Concomitant]
     Active Substance: ETHINYL ESTRADIOL\ETONOGESTREL
  12. VALTREX [Concomitant]
     Active Substance: VALACYCLOVIR HYDROCHLORIDE
  13. BENZTROPINE MESYLATE. [Concomitant]
     Active Substance: BENZTROPINE MESYLATE
     Route: 048
  14. LANSOPRAZOLE. [Concomitant]
     Active Substance: LANSOPRAZOLE
  15. MIRALAX [Concomitant]
     Active Substance: POLYETHYLENE GLYCOL 3350
  16. SUVOREXANT. [Concomitant]
     Active Substance: SUVOREXANT

REACTIONS (1)
  - Aspiration [None]

NARRATIVE: CASE EVENT DATE: 20190404
